FAERS Safety Report 5046940-4 (Version None)
Quarter: 2006Q2

REPORT INFORMATION
  Report Type: 
  Country: None (occurrence: None)
  Receive Date: 20060601
  Receipt Date: 20060314
  Transmission Date: 20061013
  Serious: No
  Sender: FDA-Public Use
  Company Number: 2006PV010228

PATIENT
  Age: 63 Year
  Sex: Male
  Weight: 82.5547 kg

DRUGS (3)
  1. BYETTA [Suspect]
     Indication: DIABETES MELLITUS NON-INSULIN-DEPENDENT
     Dosage: T MCG;BID;SC
     Route: 058
     Dates: start: 20060210
  2. METFORMIN [Concomitant]
  3. GLYNASE [Concomitant]

REACTIONS (4)
  - CONSTIPATION [None]
  - ERUCTATION [None]
  - FAECAL VOLUME INCREASED [None]
  - GASTROOESOPHAGEAL REFLUX DISEASE [None]
